FAERS Safety Report 19253337 (Version 2)
Quarter: 2023Q1

REPORT INFORMATION
  Report Type: Spontaneous
  Country: TW (occurrence: TW)
  Receive Date: 20210513
  Receipt Date: 20230125
  Transmission Date: 20230417
  Serious: Yes (Life-Threatening, Hospitalization, Other)
  Sender: FDA-Public Use
  Company Number: TW-SA-SAC20210506000388

PATIENT
  Age: 42 Year
  Sex: Female

DRUGS (14)
  1. TARGOCID [Suspect]
     Active Substance: TEICOPLANIN
     Indication: Cellulitis
     Dosage: UNK
     Dates: start: 20210326, end: 20210403
  2. RIFAMPIN [Suspect]
     Active Substance: RIFAMPIN
     Indication: Cellulitis
     Dosage: 600 MG, 1X
     Dates: start: 20210404, end: 20210408
  3. PIPERACILLIN SODIUM\TAZOBACTAM SODIUM [Suspect]
     Active Substance: PIPERACILLIN SODIUM\TAZOBACTAM SODIUM
     Indication: Cellulitis
     Dosage: 6 DF, 1X
     Dates: start: 20210408, end: 20210412
  4. PIPERACILLIN SODIUM\TAZOBACTAM SODIUM [Suspect]
     Active Substance: PIPERACILLIN SODIUM\TAZOBACTAM SODIUM
     Indication: Pneumonia
  5. CEFTAROLINE FOSAMIL [Suspect]
     Active Substance: CEFTAROLINE FOSAMIL
     Indication: Cellulitis
     Dosage: 1200 MG, QD FREQUENCY OF ADMINISTRATION 1.0 TIME A DAY
     Route: 042
     Dates: start: 20210412, end: 20210413
  6. CEFTAROLINE FOSAMIL [Suspect]
     Active Substance: CEFTAROLINE FOSAMIL
     Indication: Pneumonia
  7. TIGECYCLINE [Suspect]
     Active Substance: TIGECYCLINE
     Indication: Cellulitis
     Dosage: UNK
     Dates: start: 20210413, end: 20210422
  8. FUSIDATE SODIUM [Suspect]
     Active Substance: FUSIDATE SODIUM
     Indication: Cellulitis
     Dosage: 1500 MG, 1X
     Dates: start: 20210403, end: 20210408
  9. FUSIDATE SODIUM [Suspect]
     Active Substance: FUSIDATE SODIUM
     Dosage: 2 DF, 1X
     Dates: start: 20210408, end: 20210412
  10. OXACILLIN [Suspect]
     Active Substance: OXACILLIN SODIUM
     Indication: Cellulitis
     Dosage: UNK
     Dates: start: 20210408, end: 20210408
  11. CEFEPIME [Suspect]
     Active Substance: CEFEPIME HYDROCHLORIDE
     Indication: Cellulitis
     Dosage: UNK
     Dates: start: 20210413, end: 20210422
  12. CEFEPIME [Suspect]
     Active Substance: CEFEPIME HYDROCHLORIDE
     Indication: Pneumonia
  13. DORIPENEM [Concomitant]
     Active Substance: DORIPENEM
     Dosage: 500 MG, Q8H
     Route: 042
     Dates: start: 20210419, end: 20210422
  14. SOLU-MEDROL [Concomitant]
     Active Substance: METHYLPREDNISOLONE SODIUM SUCCINATE
     Dosage: 40 MG, Q12H

REACTIONS (22)
  - Acute respiratory distress syndrome [Recovered/Resolved]
  - Syncope [Recovered/Resolved]
  - Dyspnoea [Recovered/Resolved]
  - Cough [Recovered/Resolved]
  - Pneumonia [Recovered/Resolved]
  - Wheezing [Recovered/Resolved]
  - Burning sensation [Recovered/Resolved]
  - Dermatitis [Recovered/Resolved]
  - Presyncope [Recovered/Resolved]
  - Hyperhidrosis [Recovered/Resolved]
  - Oxygen saturation decreased [Recovered/Resolved]
  - Fatigue [Recovered/Resolved]
  - Dyspnoea [Recovered/Resolved]
  - Dizziness [Recovered/Resolved]
  - Aspartate aminotransferase increased [Unknown]
  - Nausea [Recovered/Resolved]
  - Alanine aminotransferase increased [Unknown]
  - Pruritus [Recovered/Resolved]
  - Rash [Recovered/Resolved]
  - Deafness [Recovered/Resolved]
  - Vomiting [Recovered/Resolved]
  - Chills [Recovered/Resolved]

NARRATIVE: CASE EVENT DATE: 20210401
